FAERS Safety Report 7142146-3 (Version None)
Quarter: 2010Q4

REPORT INFORMATION
  Report Type: 
  Country: None (occurrence: None)
  Receive Date: 20101207
  Receipt Date: 20101130
  Transmission Date: 20110411
  Serious: Yes (Death)
  Sender: FDA-Public Use
  Company Number: BR-PFIZER INC-2010162756

PATIENT
  Age: 31 Year
  Sex: Male

DRUGS (1)
  1. GEODON [Suspect]
     Dosage: 160 MG, UNK
     Route: 048

REACTIONS (1)
  - DIABETIC COMPLICATION [None]
